FAERS Safety Report 26164067 (Version 2)
Quarter: 2025Q4

REPORT INFORMATION
  Report Type: Spontaneous
  Country: CH (occurrence: CH)
  Receive Date: 20251216
  Receipt Date: 20251224
  Transmission Date: 20260119
  Serious: Yes (Hospitalization, Other)
  Sender: NOVO NORDISK
  Company Number: CH-NOVOPROD-1582180

PATIENT
  Age: 85 Year
  Sex: Female
  Weight: 68 kg

DRUGS (3)
  1. OZEMPIC [Suspect]
     Active Substance: SEMAGLUTIDE
     Indication: Product used for unknown indication
     Dosage: UNK, QW
     Route: 058
     Dates: start: 20251021, end: 20251124
  2. TRESIBA [Suspect]
     Active Substance: INSULIN DEGLUDEC
     Indication: Product used for unknown indication
     Dosage: 22 (REPORTED WITHOUT UNIT), QD
     Route: 058
     Dates: start: 20250530
  3. NOVORAPID [Concomitant]
     Active Substance: INSULIN ASPART
     Indication: Product use in unapproved indication
     Dosage: UNK
     Route: 058

REACTIONS (4)
  - Circulatory collapse [Recovered/Resolved]
  - Fall [Unknown]
  - Nausea [Unknown]
  - Dizziness [Unknown]
